FAERS Safety Report 21177818 (Version 1)
Quarter: 2022Q3

REPORT INFORMATION
  Report Type: Other
  Country: CN (occurrence: CN)
  Receive Date: 20220805
  Receipt Date: 20220805
  Transmission Date: 20221027
  Serious: Yes (Life-Threatening, Other)
  Sender: FDA-Public Use
  Company Number: CN-GE HEALTHCARE-2022CSU005282

PATIENT
  Age: 68 Year
  Sex: Male
  Weight: 68 kg

DRUGS (2)
  1. OMNIPAQUE [Suspect]
     Active Substance: IOHEXOL
     Indication: Diagnostic procedure
     Dosage: 100 ML, SINGLE
     Route: 040
     Dates: start: 20220726, end: 20220726
  2. OMNIPAQUE [Suspect]
     Active Substance: IOHEXOL
     Indication: Coronary artery disease

REACTIONS (5)
  - Hyperpyrexia [Recovering/Resolving]
  - Pallor [Recovering/Resolving]
  - Blood pressure decreased [Recovered/Resolved]
  - Dyspnoea [Recovering/Resolving]
  - Chills [Recovering/Resolving]

NARRATIVE: CASE EVENT DATE: 20220726
